FAERS Safety Report 8012313-5 (Version None)
Quarter: 2011Q4

REPORT INFORMATION
  Report Type: 
  Country: None (occurrence: None)
  Receive Date: 20111228
  Receipt Date: 20111227
  Transmission Date: 20120403
  Serious: Yes (Other)
  Sender: FDA-Public Use
  Company Number: US-PFIZER INC-2011272347

PATIENT
  Sex: Female
  Weight: 68.934 kg

DRUGS (6)
  1. VITAMIN D [Concomitant]
     Dosage: UNK
  2. LYRICA [Suspect]
     Indication: FIBROMYALGIA
     Dosage: 275 MG, 2X/DAY
     Route: 048
  3. LYRICA [Suspect]
     Dosage: 150 MG, 3X/DAY
     Route: 048
     Dates: end: 20111105
  4. CYMBALTA [Suspect]
     Indication: DEPRESSION
     Dosage: UNK
  5. DEPAKOTE [Concomitant]
     Indication: CONVULSION
     Dosage: 1000 MG, DAILY
     Route: 048
  6. DILANTIN [Suspect]
     Indication: CONVULSION
     Dosage: UNK
     Route: 048

REACTIONS (10)
  - DRUG INEFFECTIVE [None]
  - ADRENAL INSUFFICIENCY [None]
  - HYPOGLYCAEMIA [None]
  - WITHDRAWAL SYNDROME [None]
  - PROTEIN TOTAL DECREASED [None]
  - BEDRIDDEN [None]
  - CONVULSION [None]
  - ABNORMAL LOSS OF WEIGHT [None]
  - MUSCULAR WEAKNESS [None]
  - BLOOD POTASSIUM DECREASED [None]
